FAERS Safety Report 14624928 (Version 1)
Quarter: 2018Q1

REPORT INFORMATION
  Report Type: Report from Study
  Country: US (occurrence: US)
  Receive Date: 20180312
  Receipt Date: 20180312
  Transmission Date: 20180509
  Serious: No
  Sender: FDA-Public Use
  Company Number: PHEH2018US009661

PATIENT
  Age: 7 Year
  Sex: Female

DRUGS (1)
  1. ILARIS [Suspect]
     Active Substance: CANAKINUMAB
     Indication: CRYOPYRIN ASSOCIATED PERIODIC SYNDROME
     Dosage: 100 MG, EVERY 8 WEEKS
     Route: 058

REACTIONS (4)
  - Heart rate increased [Unknown]
  - Nervousness [Unknown]
  - Vomiting [Unknown]
  - Hypersomnia [Unknown]

NARRATIVE: CASE EVENT DATE: 20180227
